FAERS Safety Report 8058146-5 (Version None)
Quarter: 2012Q1

REPORT INFORMATION
  Report Type: 
  Country: None (occurrence: None)
  Receive Date: 20120112
  Receipt Date: 20111223
  Transmission Date: 20120608
  Serious: Yes (Other)
  Sender: FDA-Public Use
  Company Number: 20110887

PATIENT
  Age: 33 Year
  Sex: Female

DRUGS (2)
  1. VENOFER [Suspect]
     Indication: IRON DEFICIENCY ANAEMIA
     Dosage: 500 MG IN 250 ML NS-4 HOURS INTRAVENOUS DRIP
     Route: 041
     Dates: start: 20111220, end: 20111220
  2. CYANOCOBALAMIN [Concomitant]

REACTIONS (10)
  - OEDEMA PERIPHERAL [None]
  - BURNING SENSATION [None]
  - RASH ERYTHEMATOUS [None]
  - DIZZINESS [None]
  - HEART RATE INCREASED [None]
  - PARAESTHESIA [None]
  - ARTHRALGIA [None]
  - MUSCLE TIGHTNESS [None]
  - HYPERSENSITIVITY [None]
  - PRODUCT QUALITY ISSUE [None]
